FAERS Safety Report 21258137 (Version 1)
Quarter: 2022Q3

REPORT INFORMATION
  Report Type: Spontaneous
  Country: US (occurrence: None)
  Receive Date: 20220825
  Receipt Date: 20220825
  Transmission Date: 20221027
  Serious: Yes (Hospitalization)
  Sender: FDA-Public Use
  Company Number: None

PATIENT
  Age: 81 Year
  Sex: Female
  Weight: 59.96 kg

DRUGS (13)
  1. PIQRAY [Suspect]
     Active Substance: ALPELISIB
     Indication: Breast cancer female
     Dosage: FREQUENCY : DAILY;?
     Route: 048
     Dates: start: 202207
  2. ATORVASTATIN CALCIUM [Concomitant]
  3. ELIQUIS [Concomitant]
     Active Substance: APIXABAN
  4. EXEMESTANE [Concomitant]
     Active Substance: EXEMESTANE
  5. FASLODEX [Concomitant]
     Active Substance: FULVESTRANT
  6. GABAPENTIN [Concomitant]
     Active Substance: GABAPENTIN
  7. LOSARTAN POTASSIUM [Concomitant]
  8. METHOCARBAMOL [Concomitant]
  9. METOPROLOL TARTRATE [Concomitant]
  10. MULTIVITAMIN ADULT [Concomitant]
  11. PANTOPRAZOLE SODIUM [Concomitant]
  12. TYLENOL EXTRA STRENGTH [Concomitant]
     Active Substance: ACETAMINOPHEN
  13. VITAMIN C [Concomitant]
     Active Substance: ASCORBIC ACID

REACTIONS (2)
  - Thrombosis [None]
  - Dysphagia [None]
